FAERS Safety Report 17230835 (Version 9)
Quarter: 2022Q4

REPORT INFORMATION
  Report Type: Report from Study
  Country: US (occurrence: US)
  Receive Date: 20200103
  Receipt Date: 20221223
  Transmission Date: 20230113
  Serious: Yes (Hospitalization, Other)
  Sender: FDA-Public Use
  Company Number: US-SHIRE-US201945486

PATIENT
  Age: 33 Year
  Sex: Female
  Weight: 91 kg

DRUGS (22)
  1. LANADELUMAB [Suspect]
     Active Substance: LANADELUMAB
     Indication: Hereditary angioedema
     Dosage: 300 MILLIGRAM, Q2WEEKS
     Route: 058
     Dates: start: 20190714
  2. LANADELUMAB [Suspect]
     Active Substance: LANADELUMAB
     Indication: Immune system disorder
     Dosage: 2 MILLILITER/300MG
     Route: 058
  3. LANADELUMAB [Suspect]
     Active Substance: LANADELUMAB
     Dosage: 300 MILLIGRAM, Q2WEEKS
     Route: 058
  4. LANADELUMAB [Suspect]
     Active Substance: LANADELUMAB
     Dosage: 300 MILLIGRAM, Q2WEEKS
     Route: 058
     Dates: start: 20220413
  5. FIRAZYR [Suspect]
     Active Substance: ICATIBANT ACETATE
     Indication: Hereditary angioedema
     Dosage: 3 MILLIGRAM
     Route: 058
     Dates: start: 20130211
  6. FIRAZYR [Suspect]
     Active Substance: ICATIBANT ACETATE
     Indication: Hereditary angioedema
     Dosage: 3 MILLIGRAM
     Route: 058
     Dates: start: 20130211
  7. FIRAZYR [Suspect]
     Active Substance: ICATIBANT ACETATE
     Indication: Immune system disorder
     Dosage: 30 MILLIGRAM, Q2WEEKS
     Route: 058
     Dates: start: 20200610
  8. FIRAZYR [Suspect]
     Active Substance: ICATIBANT ACETATE
     Indication: Immune system disorder
     Dosage: 30 MILLIGRAM, Q2WEEKS
     Route: 058
     Dates: start: 20200610
  9. FIRAZYR [Suspect]
     Active Substance: ICATIBANT ACETATE
     Dosage: 30 MILLIGRAM
     Route: 058
     Dates: start: 20201006
  10. FIRAZYR [Suspect]
     Active Substance: ICATIBANT ACETATE
     Dosage: 30 MILLIGRAM
     Route: 058
     Dates: start: 20201006
  11. FIRAZYR [Suspect]
     Active Substance: ICATIBANT ACETATE
     Dosage: 3 MILLILITER
     Route: 058
  12. FIRAZYR [Suspect]
     Active Substance: ICATIBANT ACETATE
     Dosage: 3 MILLILITER
     Route: 058
  13. BACTRIM [Suspect]
     Active Substance: SULFAMETHOXAZOLE\TRIMETHOPRIM
     Indication: Product used for unknown indication
     Route: 065
  14. PROMETHAZINE HYDROCHLORIDE [Concomitant]
     Active Substance: PROMETHAZINE HYDROCHLORIDE
     Route: 065
  15. PRILOSEC [Concomitant]
     Active Substance: OMEPRAZOLE MAGNESIUM
  16. BENTYL [Concomitant]
     Active Substance: DICYCLOMINE HYDROCHLORIDE
  17. FLUTICASONE PROPIONATE [Concomitant]
     Active Substance: FLUTICASONE PROPIONATE
  18. RIZATRIPTAN [Concomitant]
     Active Substance: RIZATRIPTAN
  19. PEPCID [Concomitant]
     Active Substance: FAMOTIDINE
  20. ESTRADIOL [Concomitant]
     Active Substance: ESTRADIOL
     Dosage: UNK, 1/WEEK
  21. OMEPRAZOLE [Concomitant]
     Active Substance: OMEPRAZOLE
  22. LEVSIN [Concomitant]
     Active Substance: HYOSCYAMINE SULFATE

REACTIONS (6)
  - Ovarian cyst [Not Recovered/Not Resolved]
  - Endometriosis [Not Recovered/Not Resolved]
  - Hereditary angioedema [Unknown]
  - Pneumonia [Unknown]
  - Influenza [Unknown]
  - Drug hypersensitivity [Unknown]

NARRATIVE: CASE EVENT DATE: 20210514
